FAERS Safety Report 6500191-2 (Version None)
Quarter: 2009Q4

REPORT INFORMATION
  Report Type: 
  Country: None (occurrence: None)
  Receive Date: 20091127
  Receipt Date: 20081105
  Transmission Date: 20100525
  Serious: Yes (Disabling, Other)
  Sender: FDA-Public Use
  Company Number: WAES 0802USA00989

PATIENT
  Age: 61 Year
  Sex: Female

DRUGS (5)
  1. FOSAMAX [Suspect]
     Indication: OSTEOPENIA
     Dosage: 5 MG/DAILY/PO 70 MG/WKY/PO
     Route: 048
     Dates: start: 20011221, end: 20050616
  2. HYDRODIURIL [THERAPY UNSPECIFIED] [Concomitant]
  3. CALCIUM (UNSPECIFIED) [Concomitant]
  4. HORMONES (UNSPECIFIED) [Concomitant]
  5. THYROID TAB [Concomitant]

REACTIONS (26)
  - ACROCHORDON [None]
  - ADVERSE EVENT [None]
  - BALANCE DISORDER [None]
  - CHEST PAIN [None]
  - DENTAL CARIES [None]
  - DEPRESSION [None]
  - DIARRHOEA [None]
  - FACIAL PALSY [None]
  - FOOT DEFORMITY [None]
  - GASTROOESOPHAGEAL REFLUX DISEASE [None]
  - GINGIVAL POLYP [None]
  - IMPAIRED HEALING [None]
  - INSOMNIA [None]
  - LIPOMA [None]
  - LOOSE TOOTH [None]
  - NECK MASS [None]
  - ORAL PAIN [None]
  - OSTEOMYELITIS [None]
  - PAIN IN EXTREMITY [None]
  - SENSITIVITY OF TEETH [None]
  - SINUS DISORDER [None]
  - STRESS URINARY INCONTINENCE [None]
  - TONGUE DISORDER [None]
  - TOOTH FRACTURE [None]
  - TOOTH INFECTION [None]
  - WEIGHT INCREASED [None]
